FAERS Safety Report 5492595-4 (Version None)
Quarter: 2007Q4

REPORT INFORMATION
  Report Type: 
  Country: None (occurrence: None)
  Receive Date: 20071022
  Receipt Date: 20070102
  Transmission Date: 20080405
  Serious: Yes (Life-Threatening, Hospitalization)
  Sender: FDA-Public Use
  Company Number: FR-GENENTECH-249822

PATIENT
  Sex: Male

DRUGS (6)
  1. RITUXIMAB [Suspect]
     Indication: CHRONIC LYMPHOCYTIC LEUKAEMIA
     Dosage: 375 MG, UNK
     Route: 042
     Dates: start: 20061116, end: 20061116
  2. RITUXIMAB [Suspect]
     Dosage: 905 MG, UNK
     Route: 042
     Dates: start: 20061122
  3. RITUXIMAB [Suspect]
     Dosage: 905 MG, UNK
     Route: 042
     Dates: start: 20061129
  4. FLUDARABINE PHOSPHATE [Concomitant]
     Indication: CHRONIC LYMPHOCYTIC LEUKAEMIA
     Dosage: 46 MG, UNK
     Route: 042
     Dates: start: 20061117, end: 20061121
  5. AMIKLIN [Concomitant]
     Indication: INFECTION
     Route: 042
     Dates: start: 20070303
  6. CYMEVAN [Concomitant]
     Indication: CYTOMEGALOVIRUS INFECTION
     Dosage: UNK, UNK
     Route: 042
     Dates: start: 20070314

REACTIONS (1)
  - GRAFT VERSUS HOST DISEASE [None]
